FAERS Safety Report 11788234 (Version 1)
Quarter: 2015Q4

REPORT INFORMATION
  Report Type: Report from Study
  Country: CA (occurrence: CA)
  Receive Date: 20151201
  Receipt Date: 20151201
  Transmission Date: 20160305
  Serious: Yes (Other)
  Sender: FDA-Public Use
  Company Number: CA-AMGEN-CANSL2015126134

PATIENT
  Age: 91 Year
  Sex: Female

DRUGS (1)
  1. PROLIA [Suspect]
     Active Substance: DENOSUMAB
     Indication: PRODUCT USED FOR UNKNOWN INDICATION
     Dosage: 60 MG, Q6MO
     Route: 058
     Dates: start: 20141128

REACTIONS (9)
  - Ear infection [Unknown]
  - Vomiting [Unknown]
  - Pruritus generalised [Unknown]
  - Urinary tract infection [Unknown]
  - Headache [Unknown]
  - Abdominal discomfort [Unknown]
  - Multiple fractures [Unknown]
  - Abdominal pain upper [Unknown]
  - Skin infection [Unknown]
